FAERS Safety Report 8414660-1 (Version None)
Quarter: 2012Q2

REPORT INFORMATION
  Report Type: 
  Country: None (occurrence: None)
  Receive Date: 20120605
  Receipt Date: 20120521
  Transmission Date: 20120825
  Serious: Yes (Hospitalization)
  Sender: FDA-Public Use
  Company Number: BE-WATSON-2012-09454

PATIENT
  Age: 86 Year
  Sex: Male

DRUGS (1)
  1. METRONIDAZOLE [Suspect]
     Indication: LIVER ABSCESS
     Dosage: 1.5 G, DAILY
     Route: 048

REACTIONS (3)
  - NEUROPATHY PERIPHERAL [None]
  - NYSTAGMUS [None]
  - EYE MOVEMENT DISORDER [None]
